FAERS Safety Report 10627636 (Version 1)
Quarter: 2014Q4

REPORT INFORMATION
  Report Type: Spontaneous
  Country: US (occurrence: US)
  Receive Date: 20141205
  Receipt Date: 20141205
  Transmission Date: 20150529
  Serious: Yes (Hospitalization)
  Sender: FDA-Public Use
  Company Number: US-BRISTOL-MYERS SQUIBB COMPANY-21666847

PATIENT
  Age: 55 Year
  Sex: Male
  Weight: 104.31 kg

DRUGS (1)
  1. KENALOG-10 [Suspect]
     Active Substance: TRIAMCINOLONE ACETONIDE
     Indication: PAIN
     Dosage: INJ ON:MAY2012,26DEC2012
     Dates: start: 2011

REACTIONS (4)
  - Coma [Unknown]
  - Weight decreased [Recovering/Resolving]
  - Cerebrovascular accident [Unknown]
  - Meningitis fungal [Not Recovered/Not Resolved]

NARRATIVE: CASE EVENT DATE: 201301
